FAERS Safety Report 25929729 (Version 2)
Quarter: 2025Q4

REPORT INFORMATION
  Report Type: Spontaneous
  Country: US (occurrence: US)
  Receive Date: 20251016
  Receipt Date: 20251202
  Transmission Date: 20260117
  Serious: Yes (Hospitalization)
  Sender: ROCHE
  Company Number: US-ROCHE-10000408842

PATIENT
  Age: 16 Year
  Sex: Male

DRUGS (2)
  1. HEMLIBRA [Suspect]
     Active Substance: EMICIZUMAB-KXWH
     Indication: Factor VIII deficiency
     Dosage: STRENGTH: 105MG/0.7ML, 60MG/0.4ML
     Route: 058
     Dates: start: 202302
  2. HEMLIBRA [Suspect]
     Active Substance: EMICIZUMAB-KXWH
     Dosage: STRENGTH: 105MG/0.7ML, 60MG/0.4ML
     Route: 058
     Dates: start: 202302

REACTIONS (1)
  - Concussion [Unknown]

NARRATIVE: CASE EVENT DATE: 20250929
